FAERS Safety Report 18109336 (Version 1)
Quarter: 2020Q3

REPORT INFORMATION
  Report Type: Spontaneous
  Country: US (occurrence: US)
  Receive Date: 20200804
  Receipt Date: 20200804
  Transmission Date: 20201103
  Serious: Yes (Other)
  Sender: FDA-Public Use
  Company Number: None

PATIENT
  Age: 77 Year
  Sex: Male
  Weight: 95.5 kg

DRUGS (4)
  1. HYDROCHLOROTHIAZIDE 12.5MG DAILY [Concomitant]
     Dates: start: 20200728, end: 20200729
  2. LOSARTAN 100 MG DAILY [Concomitant]
     Dates: start: 20200727, end: 20200729
  3. DEXAMETHASONE 6 MG DAILY [Concomitant]
     Dates: start: 20200727, end: 20200731
  4. REMDESIVIR. [Suspect]
     Active Substance: REMDESIVIR
     Indication: COVID-19
     Dosage: ?          OTHER FREQUENCY:ONCE;?
     Route: 042
     Dates: start: 20200728, end: 20200729

REACTIONS (1)
  - Acute kidney injury [None]

NARRATIVE: CASE EVENT DATE: 20200729
